FAERS Safety Report 5159682-1 (Version None)
Quarter: 2006Q4

REPORT INFORMATION
  Report Type: 
  Country: None (occurrence: None)
  Receive Date: 20061129
  Receipt Date: 20061002
  Transmission Date: 20070319
  Serious: Yes (Hospitalization)
  Sender: FDA-Public Use
  Company Number: FR-ROCHE-465904

PATIENT
  Age: 76 Year
  Sex: Female
  Weight: 62 kg

DRUGS (19)
  1. ROCEPHIN [Suspect]
     Route: 065
     Dates: start: 20060811
  2. BACTRIM [Suspect]
     Route: 065
     Dates: start: 20060818, end: 20060831
  3. CELEBREX [Suspect]
     Indication: DRUG USE FOR UNKNOWN INDICATION
     Route: 048
     Dates: start: 20060731
  4. CIPROFLOXACIN [Suspect]
     Route: 065
     Dates: start: 20060810
  5. ACTISKENAN [Concomitant]
     Indication: PYELONEPHRITIS ACUTE
     Route: 048
     Dates: start: 20060810
  6. DOLIPRANE [Concomitant]
     Dosage: DURATION REPORTED AS THREE WEEKS AND ONE DAY.
     Route: 048
     Dates: start: 20060810, end: 20060831
  7. TAHOR [Concomitant]
     Dosage: LONG-STANDING TREATMENT.
  8. AVLOCARDYL [Concomitant]
  9. DEROXAT [Concomitant]
  10. FOSAMAX [Concomitant]
  11. FORLAX [Concomitant]
  12. OGAST [Concomitant]
     Dates: end: 20060831
  13. CETIRIZINE HCL [Concomitant]
     Dates: start: 20060830
  14. NOROXIN [Concomitant]
     Dates: start: 20060830
  15. DAKTARIN [Concomitant]
     Route: 002
     Dates: start: 20060830
  16. KETODERM [Concomitant]
     Dates: start: 20060830
  17. GYNO-PEVARYL [Concomitant]
     Dates: start: 20060830
  18. OMEPRAZOLE [Concomitant]
     Dates: start: 20060831
  19. ACETAMINOPHEN [Concomitant]
     Dates: start: 20060831

REACTIONS (2)
  - ODYNOPHAGIA [None]
  - STEVENS-JOHNSON SYNDROME [None]
